FAERS Safety Report 8778850 (Version 1)
Quarter: 2012Q4

REPORT INFORMATION
  Report Type: 
  Country: TH (occurrence: TH)
  Receive Date: 20120912
  Receipt Date: 20120912
  Transmission Date: 20130627
  Serious: Yes (Death, Other)
  Sender: FDA-Public Use
  Company Number: PHHY2008TH044241

PATIENT
  Sex: Male

DRUGS (1)
  1. GLIVEC [Suspect]
     Indication: CHRONIC MYELOID LEUKAEMIA
     Dates: start: 20070409

REACTIONS (7)
  - Blast crisis in myelogenous leukaemia [Fatal]
  - Acute lymphocytic leukaemia [Fatal]
  - Chronic myeloid leukaemia [Fatal]
  - Malignant neoplasm progression [Fatal]
  - Disseminated intravascular coagulation [Unknown]
  - Sepsis [Unknown]
  - Pneumonia [Unknown]
